FAERS Safety Report 7345063-9 (Version None)
Quarter: 2011Q1

REPORT INFORMATION
  Report Type: 
  Country: None (occurrence: None)
  Receive Date: 20110310
  Receipt Date: 20110228
  Transmission Date: 20110831
  Serious: Yes (Hospitalization, Other)
  Sender: FDA-Public Use
  Company Number: US-ELI_LILLY_AND_COMPANY-US201010000573

PATIENT
  Sex: Male

DRUGS (2)
  1. FORTEO [Suspect]
     Dosage: 20 UG, DAILY (1/D)
     Dates: end: 20110207
  2. FORTEO [Suspect]
     Indication: OSTEOPOROSIS
     Dosage: 20 UG, DAILY (1/D)
     Route: 065
     Dates: start: 20100101

REACTIONS (9)
  - PELVIC FRACTURE [None]
  - LUNG NEOPLASM [None]
  - DIABETIC ULCER [None]
  - PANCREATIC NEOPLASM [None]
  - TERMINAL STATE [None]
  - FRACTURE [None]
  - HOSPITALISATION [None]
  - ASTHENIA [None]
  - FALL [None]
